FAERS Safety Report 9712089 (Version 2)
Quarter: 2013Q4

REPORT INFORMATION
  Report Type: Report from Study
  Country: JP (occurrence: JP)
  Receive Date: 20131126
  Receipt Date: 20131230
  Transmission Date: 20140711
  Serious: No
  Sender: FDA-Public Use
  Company Number: JP-B.I. PHARMACEUTICALS,INC./RIDGEFIELD-2013-BI-38801NB

PATIENT
  Age: 62 Year
  Sex: Male
  Weight: 81 kg

DRUGS (8)
  1. TRAZENTA [Suspect]
     Indication: TYPE 2 DIABETES MELLITUS
     Dosage: 5 MG
     Route: 048
     Dates: start: 20130920
  2. ARTIST [Concomitant]
     Dosage: 20 MG
     Route: 048
  3. ALLOPURINOL [Concomitant]
     Dosage: 300 MG
     Route: 048
  4. GLIMEPIRIDE [Concomitant]
     Indication: TYPE 2 DIABETES MELLITUS
     Dosage: 1 MG
     Route: 048
  5. BAYASPIRIN [Concomitant]
     Dosage: 100 MG
     Route: 048
  6. PLAVIX [Concomitant]
     Dosage: 75 MG
     Route: 048
  7. LANSOPRAZOLE-OD [Concomitant]
     Indication: PROPHYLAXIS
     Dosage: 15 MG
     Route: 048
  8. DIART [Concomitant]
     Dosage: 60 MG
     Route: 048

REACTIONS (1)
  - Adrenal adenoma [Not Recovered/Not Resolved]
